FAERS Safety Report 10592736 (Version 2)
Quarter: 2014Q4

REPORT INFORMATION
  Report Type: Spontaneous
  Country: US (occurrence: US)
  Receive Date: 20141119
  Receipt Date: 20141222
  Transmission Date: 20150529
  Serious: Yes (Other)
  Sender: FDA-Public Use
  Company Number: US-PFIZER INC-2014315588

PATIENT
  Age: 7 Year
  Sex: Male

DRUGS (6)
  1. PROBIOTICS [Concomitant]
     Active Substance: PROBIOTICS NOS
     Dosage: UNK
  2. ZOLOFT [Suspect]
     Active Substance: SERTRALINE HYDROCHLORIDE
     Indication: ANXIETY
     Dosage: 20 MG/ML, (1 ML), 1X/DAY (IN MORNING)
     Dates: start: 2013, end: 20141109
  3. CROMOLYN SODIUM. [Concomitant]
     Active Substance: CROMOLYN SODIUM
     Indication: RESPIRATORY THERAPY
     Dosage: UNK, 2X/DAY
  4. SINGULAIR [Concomitant]
     Active Substance: MONTELUKAST SODIUM
     Dosage: 5 MG, 1X/DAY
  5. EXLAX [Concomitant]
     Indication: CONSTIPATION
     Dosage: UNK, 1X/DAY
  6. ZOLOFT [Suspect]
     Active Substance: SERTRALINE HYDROCHLORIDE
     Dosage: 20MG/ML (2 ML), 1X/DAY (IN MORNING)
     Dates: start: 20141110

REACTIONS (7)
  - Hypoaesthesia oral [Not Recovered/Not Resolved]
  - Failure to thrive [Not Recovered/Not Resolved]
  - Weight decreased [Unknown]
  - Decreased appetite [Not Recovered/Not Resolved]
  - Product label issue [Unknown]
  - Wrong technique in drug usage process [Unknown]
  - Dysgeusia [Unknown]

NARRATIVE: CASE EVENT DATE: 2013
